FAERS Safety Report 10345114 (Version 1)
Quarter: 2014Q3

REPORT INFORMATION
  Report Type: Spontaneous
  Country: US (occurrence: US)
  Receive Date: 20140728
  Receipt Date: 20140728
  Transmission Date: 20150326
  Serious: Yes (Other)
  Sender: FDA-Public Use
  Company Number: US-SUN PHARMACEUTICAL INDUSTRIES LTD-2014SUN01668

PATIENT

DRUGS (8)
  1. GLYBURIDE. [Concomitant]
     Active Substance: GLYBURIDE
     Indication: DIABETES MELLITUS
  2. VISTARIL [Concomitant]
     Active Substance: HYDROXYZINE PAMOATE
  3. BACTRIM [Suspect]
     Active Substance: SULFAMETHOXAZOLE\TRIMETHOPRIM
     Indication: URINARY TRACT INFECTION
     Dosage: UNK
     Route: 065
  4. BACTRIM [Suspect]
     Active Substance: SULFAMETHOXAZOLE\TRIMETHOPRIM
     Indication: CELLULITIS
  5. TRIGLIDE [Concomitant]
     Active Substance: FENOFIBRATE
  6. VICTOZA [Concomitant]
     Active Substance: LIRAGLUTIDE
  7. LISINOPRIL. [Concomitant]
     Active Substance: LISINOPRIL
     Indication: BLOOD PRESSURE INCREASED
  8. FLAXSEED [Concomitant]
     Active Substance: FLAX SEED

REACTIONS (4)
  - Throat tightness [Recovered/Resolved]
  - Dysphagia [Recovered/Resolved]
  - Hypoaesthesia [Recovered/Resolved]
  - Anaphylactic shock [Recovered/Resolved]
